FAERS Safety Report 8452481-4 (Version None)
Quarter: 2012Q2

REPORT INFORMATION
  Report Type: 
  Country: None (occurrence: None)
  Receive Date: 20120620
  Receipt Date: 20120522
  Transmission Date: 20120825
  Serious: No
  Sender: FDA-Public Use
  Company Number: US-VERTEX PHARMACEUTICALS INC.-AE-2012-005276

PATIENT
  Sex: Female
  Weight: 67.192 kg

DRUGS (5)
  1. INCIVEK [Suspect]
     Indication: HEPATITIS C
     Route: 048
     Dates: start: 20120329
  2. PEGASYS [Concomitant]
     Indication: HEPATITIS C
     Route: 058
     Dates: start: 20120329
  3. RIBAVIRIN [Concomitant]
     Indication: HEPATITIS C
     Route: 048
     Dates: start: 20120329
  4. CALCIUM WITH VITAMIN D [Concomitant]
  5. METHOCARBAMOL [Concomitant]

REACTIONS (5)
  - FATIGUE [None]
  - CHILLS [None]
  - FREQUENT BOWEL MOVEMENTS [None]
  - RASH PRURITIC [None]
  - HAEMORRHOIDS [None]
